FAERS Safety Report 9744673 (Version 1)
Quarter: 2013Q4

REPORT INFORMATION
  Report Type: Spontaneous
  Country: US (occurrence: US)
  Receive Date: 20131210
  Receipt Date: 20131210
  Transmission Date: 20140711
  Serious: No
  Sender: FDA-Public Use
  Company Number: US-SA-2013SA095150

PATIENT
  Sex: 0

DRUGS (1)
  1. RENVELA [Suspect]
     Indication: PRODUCT USED FOR UNKNOWN INDICATION
     Dosage: 2-3 TABS PO TID WITH MEALS AND 2-3 TABS PO WITH SNACKS
     Route: 048

REACTIONS (1)
  - Nausea [Recovered/Resolved]
